FAERS Safety Report 6951461-5 (Version None)
Quarter: 2010Q3

REPORT INFORMATION
  Report Type: 
  Country: None (occurrence: None)
  Receive Date: 20100828
  Receipt Date: 20100329
  Transmission Date: 20110219
  Serious: No
  Sender: FDA-Public Use
  Company Number: US-ABBOTT-10P-163-0635049-00

PATIENT
  Sex: Male
  Weight: 83.99 kg

DRUGS (8)
  1. NIASPAN [Suspect]
     Indication: BLOOD CHOLESTEROL INCREASED
     Dosage: AT NIGHT
  2. NIASPAN [Suspect]
  3. PLAVIX [Concomitant]
     Indication: PRODUCT USED FOR UNKNOWN INDICATION
  4. VYTORIN [Concomitant]
     Indication: PRODUCT USED FOR UNKNOWN INDICATION
  5. RAMIPRIL [Concomitant]
     Indication: PRODUCT USED FOR UNKNOWN INDICATION
  6. TOPROL-XL [Concomitant]
     Indication: PRODUCT USED FOR UNKNOWN INDICATION
  7. CENTRUM [Concomitant]
     Indication: PRODUCT USED FOR UNKNOWN INDICATION
  8. LOVAZA [Concomitant]
     Indication: PRODUCT USED FOR UNKNOWN INDICATION

REACTIONS (2)
  - PRURITUS [None]
  - SKIN BURNING SENSATION [None]
